FAERS Safety Report 7243118-0 (Version None)
Quarter: 2011Q1

REPORT INFORMATION
  Report Type: 
  Country: None (occurrence: None)
  Receive Date: 20110125
  Receipt Date: 20110119
  Transmission Date: 20110831
  Serious: Yes (Hospitalization, Other)
  Sender: FDA-Public Use
  Company Number: US-B.I. PHARMACEUTICALS,INC./RIDGEFIELD-2011-BP-00611PF

PATIENT
  Sex: Male
  Weight: 79.82 kg

DRUGS (7)
  1. ARFORMOTEROL TARTRATE [Suspect]
     Indication: ASTHMA
  2. UNSPECIFIED MEDICATIONS [Concomitant]
  3. SPIRIVA [Suspect]
     Indication: ASTHMA
  4. CHANTIX [Suspect]
     Indication: SMOKING CESSATION THERAPY
     Dosage: 0.5 MG
     Route: 048
     Dates: start: 20110106
  5. PROLIXIN [Concomitant]
     Dosage: 10 MG
  6. WELLBUTRIN [Concomitant]
     Dosage: 300 MG
  7. ALBUTEROL [Suspect]
     Indication: ASTHMA

REACTIONS (3)
  - DRUG INTERACTION [None]
  - DYSPNOEA [None]
  - PNEUMONIA [None]
